FAERS Safety Report 8702368 (Version 6)
Quarter: 2013Q1

REPORT INFORMATION
  Report Type: Report from Study
  Country: FR (occurrence: FR)
  Receive Date: 20120803
  Receipt Date: 20130213
  Transmission Date: 20140127
  Serious: Yes (Hospitalization, Other)
  Sender: FDA-Public Use
  Company Number: FR-009507513-2012SP033871

PATIENT
  Age: 57 Year
  Sex: Male
  Weight: 65 kg

DRUGS (19)
  1. BOCEPREVIR [Suspect]
     Indication: HEPATITIS C
     Dosage: 2400 MG, QD
     Dates: start: 20111213, end: 20120728
  2. PEGINTERFERON ALFA-2B [Suspect]
     Indication: HEPATITIS C
     Dosage: 80 MICROGRAM, QW
     Dates: start: 20111115, end: 20120728
  3. RIBAVIRIN [Suspect]
     Indication: HEPATITIS C
     Dosage: 800 MG, QD
     Dates: start: 20111115, end: 20120728
  4. RIBAVIRIN [Suspect]
     Dosage: UNK
  5. TRUVADA [Suspect]
     Indication: HIV INFECTION
     Dosage: 1 DF, QOD
     Dates: start: 20070123, end: 20120728
  6. TRUVADA [Suspect]
     Dosage: UNK
  7. REYATAZ [Concomitant]
     Indication: HIV INFECTION
     Dosage: 300 MG, QD
     Dates: start: 20070123, end: 20120728
  8. NORVIR [Concomitant]
     Indication: HIV INFECTION
     Dosage: 100 MG, QD
     Dates: start: 20070123, end: 20120728
  9. SERTRALINE HYDROCHLORIDE [Concomitant]
     Indication: AFFECTIVE DISORDER
     Dosage: 50 MG, TID
     Dates: start: 20100421
  10. OMEXEL [Concomitant]
     Indication: BENIGN PROSTATIC HYPERPLASIA
     Dosage: 0.4 MG, QD
     Dates: start: 20110804
  11. CRESTOR [Concomitant]
     Indication: TYPE V HYPERLIPIDAEMIA
     Dosage: 10 MG, QD
     Dates: start: 19930116
  12. CRESTOR [Concomitant]
     Dosage: 5 MG, QD
     Dates: start: 19930116
  13. PLAVIX [Concomitant]
     Indication: ANGER
     Dosage: 75 MG, QD
     Dates: start: 19930116
  14. NEORECORMON [Concomitant]
     Indication: ANAEMIA
     Dosage: 30000 IU, QW
     Dates: start: 20120307
  15. DEXERYL TABLETS [Concomitant]
     Indication: DRY SKIN
     Dosage: 1 DF, QD
     Dates: start: 20120307
  16. LEVOCARNIL [Concomitant]
     Indication: MUSCLE SPASMS
     Dosage: 100 MG, TID
     Dates: start: 20120307
  17. DOLIPRANE [Suspect]
     Indication: INFLUENZA LIKE ILLNESS
     Dosage: 1000 MG, QD
     Dates: start: 20111115
  18. OMIX [Concomitant]
     Indication: PRODUCT USED FOR UNKNOWN INDICATION
     Dosage: 1 DF, UNK
  19. TRANSIPEG [Concomitant]
     Indication: PRODUCT USED FOR UNKNOWN INDICATION

REACTIONS (5)
  - Acute respiratory distress syndrome [Recovered/Resolved with Sequelae]
  - Abscess [Recovered/Resolved with Sequelae]
  - Glomerulonephropathy [Recovered/Resolved with Sequelae]
  - Sepsis [Recovered/Resolved with Sequelae]
  - Lung disorder [Recovered/Resolved with Sequelae]
